FAERS Safety Report 20445304 (Version 1)
Quarter: 2022Q1

REPORT INFORMATION
  Report Type: Spontaneous
  Country: US (occurrence: None)
  Receive Date: 20220208
  Receipt Date: 20220208
  Transmission Date: 20220423
  Serious: No
  Sender: FDA-Public Use
  Company Number: None

PATIENT
  Sex: Female

DRUGS (1)
  1. HUMIRA [Suspect]
     Active Substance: ADALIMUMAB
     Dosage: FREQUENCY : EVERY OTHER WEEK;?
     Route: 058
     Dates: start: 20210302

REACTIONS (7)
  - Headache [None]
  - Pain [None]
  - Fatigue [None]
  - Infection [None]
  - Therapy non-responder [None]
  - Rheumatoid arthritis [None]
  - Symptom recurrence [None]
